FAERS Safety Report 20493813 (Version 2)
Quarter: 2022Q1

REPORT INFORMATION
  Report Type: Report from Study
  Country: CA (occurrence: CA)
  Receive Date: 20220221
  Receipt Date: 20220222
  Transmission Date: 20220423
  Serious: Yes (Other)
  Sender: FDA-Public Use
  Company Number: CA-JNJFOC-20220208353

PATIENT
  Age: 69 Year
  Sex: Female
  Weight: 104 kg

DRUGS (1)
  1. REMICADE [Suspect]
     Active Substance: INFLIXIMAB
     Indication: Psoriasis
     Route: 042
     Dates: start: 20080616

REACTIONS (2)
  - Gout [Recovering/Resolving]
  - COVID-19 [Recovering/Resolving]

NARRATIVE: CASE EVENT DATE: 20220111
